FAERS Safety Report 4624411-4 (Version None)
Quarter: 2005Q1

REPORT INFORMATION
  Report Type: 
  Country: None (occurrence: None)
  Receive Date: 20050107
  Receipt Date: 20040927
  Transmission Date: 20050727
  Serious: No
  Sender: FDA-Public Use
  Company Number: 234879K04USA

PATIENT
  Age: 34 Year
  Sex: Female

DRUGS (5)
  1. REBIF [Suspect]
     Indication: MULTIPLE SCLEROSIS
     Dosage: NOT REPORTED, NOT REPORTED, 22 MCG
     Dates: start: 20040924, end: 20040927
  2. REBIF [Suspect]
     Indication: MULTIPLE SCLEROSIS
     Dosage: NOT REPORTED, NOT REPORTED, 22 MCG
     Dates: start: 20041001, end: 20041011
  3. REBIF [Suspect]
     Indication: MULTIPLE SCLEROSIS
     Dosage: NOT REPORTED, NOT REPORTED, 22 MCG
     Dates: start: 20041011
  4. TOPROL (METOPROLOL) [Concomitant]
  5. SINOPRIL [Concomitant]

REACTIONS (3)
  - CONDITION AGGRAVATED [None]
  - DYSPNOEA [None]
  - PALPITATIONS [None]
